FAERS Safety Report 7721194-6 (Version None)
Quarter: 2011Q3

REPORT INFORMATION
  Report Type: 
  Country: None (occurrence: None)
  Receive Date: 20110830
  Receipt Date: 20110830
  Transmission Date: 20111222
  Serious: No
  Sender: FDA-Public Use
  Company Number: None

PATIENT
  Age: 40 Year
  Sex: Male
  Weight: 77.3 kg

DRUGS (1)
  1. EFFEXOR [Suspect]
     Indication: DEPRESSION
     Dosage: 225 MG EFFEXOR 150 AM 75 MG NOON BY MOUTH
     Route: 048
     Dates: start: 20100101, end: 20110601

REACTIONS (6)
  - ANGER [None]
  - DECREASED APPETITE [None]
  - VERTIGO [None]
  - BALANCE DISORDER [None]
  - AGGRESSION [None]
  - PARAESTHESIA [None]
